FAERS Safety Report 7936680-3 (Version None)
Quarter: 2011Q4

REPORT INFORMATION
  Report Type: 
  Country: None (occurrence: None)
  Receive Date: 20111123
  Receipt Date: 20111115
  Transmission Date: 20120403
  Serious: Yes (Other)
  Sender: FDA-Public Use
  Company Number: US-UCBSA-045912

PATIENT
  Age: 45 Year
  Sex: Male

DRUGS (4)
  1. DEXAMETHASONE [Concomitant]
     Dosage: DAILY DOSE: 4 MG
     Dates: start: 20110401
  2. TEMOZOLOMIDE [Concomitant]
     Dosage: 75 MG/M2
     Dates: start: 20110101, end: 20110101
  3. LEVETIRACETAM [Suspect]
     Indication: CONVULSION
     Dosage: GRADUALLY INCREASED TO DAILY DOSE: 3000 MG
     Dates: start: 20110501, end: 20110101
  4. LEVETIRACETAM [Suspect]
     Dates: start: 20110401, end: 20110101

REACTIONS (1)
  - TUBULOINTERSTITIAL NEPHRITIS [None]
